FAERS Safety Report 5576848-7 (Version None)
Quarter: 2007Q4

REPORT INFORMATION
  Report Type: 
  Country: None (occurrence: None)
  Receive Date: 20071130
  Receipt Date: 20070921
  Transmission Date: 20080405
  Serious: No
  Sender: FDA-Public Use
  Company Number: US200709005349

PATIENT
  Sex: Male

DRUGS (1)
  1. BYETTA [Suspect]
     Dosage: SUBCUTANEOUS
     Route: 058

REACTIONS (3)
  - DIZZINESS [None]
  - FEELING DRUNK [None]
  - GAIT DISTURBANCE [None]
